FAERS Safety Report 6373043-9 (Version None)
Quarter: 2009Q3

REPORT INFORMATION
  Report Type: 
  Country: None (occurrence: None)
  Receive Date: 20090924
  Receipt Date: 20090721
  Transmission Date: 20100115
  Serious: No
  Sender: FDA-Public Use
  Company Number: US-ASTRAZENECA-2009SE05452

PATIENT
  Sex: Male
  Weight: 81.6 kg

DRUGS (2)
  1. SEROQUEL [Suspect]
     Route: 048
  2. CYMBALTA [Concomitant]

REACTIONS (3)
  - BIPOLAR DISORDER [None]
  - DIABETES MELLITUS [None]
  - LETHARGY [None]
